FAERS Safety Report 15342442 (Version 2)
Quarter: 2018Q3

REPORT INFORMATION
  Report Type: Spontaneous
  Country: US (occurrence: US)
  Receive Date: 20180902
  Receipt Date: 20180921
  Transmission Date: 20181010
  Serious: Yes (Hospitalization)
  Sender: FDA-Public Use
  Company Number: US-BIOGEN-2018BI00626632

PATIENT
  Age: 42 Year
  Sex: Female
  Weight: 81.4 kg

DRUGS (13)
  1. TYLENOL [Concomitant]
     Active Substance: ACETAMINOPHEN
     Indication: PROCEDURAL PAIN
     Route: 048
     Dates: start: 20180817
  2. CYCLOBENZAPRINE. [Concomitant]
     Active Substance: CYCLOBENZAPRINE
     Indication: MUSCLE SPASMS
     Route: 048
     Dates: start: 201803
  3. NASACORT [Concomitant]
     Active Substance: TRIAMCINOLONE ACETONIDE
     Indication: SEASONAL ALLERGY
     Route: 045
     Dates: start: 2014
  4. OXYCODONE [Concomitant]
     Active Substance: OXYCODONE
     Route: 048
     Dates: start: 20180817, end: 20180821
  5. TYSABRI [Suspect]
     Active Substance: NATALIZUMAB
     Indication: MULTIPLE SCLEROSIS
     Route: 042
     Dates: start: 201707
  6. VITAMIN D [Concomitant]
     Active Substance: CHOLECALCIFEROL
     Indication: ROUTINE HEALTH MAINTENANCE
     Route: 048
     Dates: start: 201701
  7. ZYRTEC [Concomitant]
     Active Substance: CETIRIZINE HYDROCHLORIDE
     Indication: SEASONAL ALLERGY
     Route: 048
     Dates: start: 2014
  8. FLUCONAZOLE. [Concomitant]
     Active Substance: FLUCONAZOLE
     Indication: FUNGAL INFECTION
     Route: 048
     Dates: start: 20180613, end: 20180613
  9. IBUPROFEN. [Concomitant]
     Active Substance: IBUPROFEN
     Indication: HYSTERECTOMY
     Route: 048
     Dates: start: 20180817
  10. RECLIPSEN [Concomitant]
     Active Substance: DESOGESTREL\ETHINYL ESTRADIOL
     Indication: CONTRACEPTION
     Route: 048
     Dates: start: 20180708
  11. NAPROXEN. [Concomitant]
     Active Substance: NAPROXEN
     Indication: POLYP
     Route: 048
     Dates: start: 20180703, end: 20180708
  12. OXYCODONE [Concomitant]
     Active Substance: OXYCODONE
     Indication: POLYP
     Dosage: 5/325MG
     Route: 048
     Dates: start: 20180703, end: 20180706
  13. ONDANSETRON [Concomitant]
     Active Substance: ONDANSETRON
     Indication: NAUSEA
     Route: 048
     Dates: start: 20180817, end: 20180820

REACTIONS (1)
  - Adenomyosis [Recovered/Resolved]

NARRATIVE: CASE EVENT DATE: 201711
